FAERS Safety Report 8682295 (Version 2)
Quarter: 2012Q4

REPORT INFORMATION
  Report Type: 
  Country: FR (occurrence: FR)
  Receive Date: 20120725
  Receipt Date: 20121024
  Transmission Date: 20130627
  Serious: Yes (Other)
  Sender: FDA-Public Use
  Company Number: FR-UCBSA-062108

PATIENT
  Age: 33 Year
  Sex: Male
  Weight: 70 kg

DRUGS (2)
  1. KEPPRA [Suspect]
     Indication: EPILEPSY
     Dosage: DOSE STRENGH : 500 MG
     Route: 048
     Dates: start: 2008
  2. NO CONCOMITANT MEDICATION [Concomitant]

REACTIONS (1)
  - Asthenospermia [Not Recovered/Not Resolved]
